FAERS Safety Report 10067554 (Version 4)
Quarter: 2019Q4

REPORT INFORMATION
  Report Type: Spontaneous
  Country: US (occurrence: US)
  Receive Date: 20140409
  Receipt Date: 20191219
  Transmission Date: 20200122
  Serious: Yes (Other)
  Sender: FDA-Public Use
  Company Number: US-UCBSA-106155

PATIENT
  Sex: Female
  Weight: 49.89 kg

DRUGS (4)
  1. CIMZIA [Suspect]
     Active Substance: CERTOLIZUMAB PEGOL
     Indication: CROHN^S DISEASE
     Dates: start: 201402, end: 2014
  2. NYSTATIN. [Concomitant]
     Active Substance: NYSTATIN
     Route: 061
  3. DIFLUCAN [Concomitant]
     Active Substance: FLUCONAZOLE
     Indication: CERVICITIS
     Dosage: 2 COURSES SEP-DEC
     Route: 048
  4. CIMZIA [Suspect]
     Active Substance: CERTOLIZUMAB PEGOL
     Indication: CROHN^S DISEASE
     Dosage: HELD IN DEC/JAN 2014
     Route: 058
     Dates: start: 201308

REACTIONS (2)
  - Psoriasis [Recovering/Resolving]
  - Anaemia [Unknown]

NARRATIVE: CASE EVENT DATE: 201308
